FAERS Safety Report 5921362-X (Version None)
Quarter: 2008Q4

REPORT INFORMATION
  Report Type: 
  Country: None (occurrence: None)
  Receive Date: 20081014
  Receipt Date: 20081001
  Transmission Date: 20090506
  Serious: Yes (Other)
  Sender: FDA-Public Use
  Company Number: 2008AP001718

PATIENT
  Age: 67 Year
  Sex: Male

DRUGS (2)
  1. CITALOPRAM HYDROBROMIDE [Suspect]
     Indication: DEPRESSION
     Dosage: 40 MG; QD, PO
     Route: 048
     Dates: start: 20070101
  2. ROSUVASTATIN CALCIUM [Concomitant]

REACTIONS (6)
  - ARTERIOVENOUS MALFORMATION [None]
  - BACK INJURY [None]
  - DIZZINESS [None]
  - FALL [None]
  - HEAD INJURY [None]
  - NIGHTMARE [None]
